FAERS Safety Report 13205042 (Version 5)
Quarter: 2017Q3

REPORT INFORMATION
  Report Type: Spontaneous
  Country: KR (occurrence: KR)
  Receive Date: 20170209
  Receipt Date: 20170728
  Transmission Date: 20171127
  Serious: Yes (Other)
  Sender: FDA-Public Use
  Company Number: KR-009507513-1701KOR008707

PATIENT
  Age: 55 Year
  Sex: Male
  Weight: 75.4 kg

DRUGS (26)
  1. EMEND (FOSAPREPITANT DIMEGLUMINE) [Suspect]
     Active Substance: FOSAPREPITANT DIMEGLUMINE
     Indication: PROPHYLAXIS OF NAUSEA AND VOMITING
     Dosage: 150 MG, ONCE
     Route: 042
     Dates: start: 20160906, end: 20160906
  2. FLUOROURACIL. [Concomitant]
     Active Substance: FLUOROURACIL
     Dosage: 1756 MG, ONCE, CYCLE 3
     Route: 042
     Dates: start: 20161004, end: 20161004
  3. AVASTIN [Concomitant]
     Active Substance: BEVACIZUMAB
     Dosage: 368 MG, ONCE, CYCLE 3
     Route: 042
     Dates: start: 20161004, end: 20161004
  4. DEXAMETHASONE. [Concomitant]
     Active Substance: DEXAMETHASONE
     Indication: PROPHYLAXIS OF NAUSEA AND VOMITING
     Dosage: 8 TABLET (4 MG), BID
     Route: 048
     Dates: start: 20160921, end: 20160922
  5. OLMETEC [Concomitant]
     Active Substance: OLMESARTAN MEDOXOMIL
     Indication: HYPERTENSION
     Dosage: 40 MG (1 TABLET), QD
     Route: 048
     Dates: start: 20160906
  6. LASIX [Concomitant]
     Active Substance: FUROSEMIDE
     Indication: HYPERTENSION
     Dosage: 0.5 TABLET (20 MG), QD
     Route: 048
     Dates: start: 20160921
  7. FLUOROURACIL. [Concomitant]
     Active Substance: FLUOROURACIL
     Indication: COLORECTAL CANCER
     Dosage: 1768 MG, ONCE (CYCLE 2)
     Route: 042
     Dates: start: 20160920, end: 20160920
  8. ALOXI [Concomitant]
     Active Substance: PALONOSETRON HYDROCHLORIDE
     Indication: PROPHYLAXIS OF NAUSEA AND VOMITING
     Dosage: 0.25 MG, ONCE
     Route: 042
     Dates: start: 20161004, end: 20161004
  9. CALMTOP [Concomitant]
     Indication: COLORECTAL CANCER
     Dosage: 346 MG, ONCE (CYCLE 2)
     Route: 042
     Dates: start: 20160920, end: 20160920
  10. CALMTOP [Concomitant]
     Dosage: 340 MG, ONCE (CYCLE 3)
     Route: 042
     Dates: start: 20161004, end: 20161004
  11. DEXAMETHASONE SODIUM PHOSPHATE. [Concomitant]
     Active Substance: DEXAMETHASONE SODIUM PHOSPHATE
     Dosage: 5 MG, ONCE
     Route: 042
     Dates: start: 20161004, end: 20161004
  12. ALOXI [Concomitant]
     Active Substance: PALONOSETRON HYDROCHLORIDE
     Dosage: 0.25 MG, ONCE
     Route: 042
     Dates: start: 20160920, end: 20160920
  13. EMEND (FOSAPREPITANT DIMEGLUMINE) [Suspect]
     Active Substance: FOSAPREPITANT DIMEGLUMINE
     Dosage: 150 MG, ONCE
     Route: 042
     Dates: start: 20161004, end: 20161004
  14. FLUOROURACIL. [Concomitant]
     Active Substance: FLUOROURACIL
     Dosage: 1768 MG, ONCE, CYCLE 2
     Route: 042
     Dates: start: 20160921, end: 20160921
  15. FLUOROURACIL. [Concomitant]
     Active Substance: FLUOROURACIL
     Dosage: 134 MG, ONCE, CYCLE 3
     Route: 042
     Dates: start: 20161004, end: 20161004
  16. ALDACTONE [Concomitant]
     Active Substance: SPIRONOLACTONE
     Indication: HYPERTENSION
     Dosage: 50 MG (2 TABLETS), BID
     Route: 048
     Dates: start: 20160921
  17. EMEND (FOSAPREPITANT DIMEGLUMINE) [Suspect]
     Active Substance: FOSAPREPITANT DIMEGLUMINE
     Dosage: 150 MG, ONCE
     Route: 042
     Dates: start: 20161115, end: 20161115
  18. FLUOROURACIL. [Concomitant]
     Active Substance: FLUOROURACIL
     Dosage: 152 MG, ONCE, CYCLE 2
     Route: 042
     Dates: start: 20160921, end: 20160921
  19. DEXAMETHASONE SODIUM PHOSPHATE. [Concomitant]
     Active Substance: DEXAMETHASONE SODIUM PHOSPHATE
     Indication: PROPHYLAXIS OF NAUSEA AND VOMITING
     Dosage: 5 MG, ONCE
     Route: 042
     Dates: start: 20160920, end: 20160920
  20. CORTISOLU [Concomitant]
     Active Substance: HYDROCORTISONE SODIUM SUCCINATE
     Dosage: 100 MG, ONCE
     Route: 042
     Dates: start: 20161004, end: 20161004
  21. EMEND (FOSAPREPITANT DIMEGLUMINE) [Suspect]
     Active Substance: FOSAPREPITANT DIMEGLUMINE
     Dosage: 150 MG, ONCE
     Route: 042
     Dates: start: 20160920, end: 20160920
  22. EMEND (FOSAPREPITANT DIMEGLUMINE) [Suspect]
     Active Substance: FOSAPREPITANT DIMEGLUMINE
     Dosage: 150 MG, ONCE
     Route: 042
     Dates: start: 20161018, end: 20161018
  23. EMEND (FOSAPREPITANT DIMEGLUMINE) [Suspect]
     Active Substance: FOSAPREPITANT DIMEGLUMINE
     Dosage: 150 MG, ONCE
     Route: 042
     Dates: start: 20161101, end: 20161101
  24. AVASTIN [Concomitant]
     Active Substance: BEVACIZUMAB
     Indication: COLORECTAL CANCER
     Dosage: 377 MG, ONCE (CYCLE 2)
     Route: 042
     Dates: start: 20160920, end: 20160920
  25. CORTISOLU [Concomitant]
     Active Substance: HYDROCORTISONE SODIUM SUCCINATE
     Indication: PROPHYLAXIS OF NAUSEA AND VOMITING
     Dosage: 100 MG, ONCE
     Route: 042
     Dates: start: 20160920, end: 20160920
  26. FLUOROURACIL. [Concomitant]
     Active Substance: FLUOROURACIL
     Indication: COLORECTAL CANCER
     Dosage: 152 MG, ONCE (CYCLE 2)
     Route: 042
     Dates: start: 20160920, end: 20160920

REACTIONS (7)
  - Decreased appetite [Recovered/Resolved]
  - Face oedema [Recovered/Resolved]
  - Dyspepsia [Recovered/Resolved]
  - Oedema [Recovered/Resolved]
  - Face oedema [Recovered/Resolved]
  - Vena cava thrombosis [Recovered/Resolved]
  - Face oedema [Recovered/Resolved]

NARRATIVE: CASE EVENT DATE: 20161004
